FAERS Safety Report 5224809-X (Version None)
Quarter: 2007Q1

REPORT INFORMATION
  Report Type: 
  Country: None (occurrence: None)
  Receive Date: 20070126
  Receipt Date: 20061130
  Transmission Date: 20070707
  Serious: Yes (Death)
  Sender: FDA-Public Use
  Company Number: T200601749

PATIENT
  Age: 42 Year

DRUGS (2)
  1. RESTORIL [Suspect]
     Dosage: ORAL
     Route: 048
  2. METFORMIN HCL [Suspect]
     Dosage: ORAL
     Route: 048

REACTIONS (1)
  - ADVERSE DRUG REACTION [None]
